FAERS Safety Report 11639868 (Version 1)
Quarter: 2015Q4

REPORT INFORMATION
  Report Type: Spontaneous
  Country: GB (occurrence: GB)
  Receive Date: 20151019
  Receipt Date: 20151019
  Transmission Date: 20160304
  Serious: Yes (Hospitalization)
  Sender: FDA-Public Use
  Company Number: GB-TEVA-600412ACC

PATIENT
  Sex: Male

DRUGS (10)
  1. DILTIAZEM [Suspect]
     Active Substance: DILTIAZEM
     Indication: HYPERTENSION
     Dosage: 360 MILLIGRAM DAILY;
     Route: 048
     Dates: start: 20130901, end: 20150928
  2. ISOSORBIDE MONONITRATE. [Concomitant]
     Active Substance: ISOSORBIDE MONONITRATE
  3. TAMSULOSIN [Concomitant]
     Active Substance: TAMSULOSIN
  4. PREGABALIN. [Concomitant]
     Active Substance: PREGABALIN
  5. ASPIRIN. [Concomitant]
     Active Substance: ASPIRIN
  6. TIZANIDINE. [Suspect]
     Active Substance: TIZANIDINE
     Indication: MYALGIA
     Dosage: 8 MILLIGRAM DAILY;
     Route: 048
     Dates: start: 20120901, end: 20150928
  7. ATORVASTATIN [Concomitant]
     Active Substance: ATORVASTATIN
  8. CITALOPRAM [Concomitant]
     Active Substance: CITALOPRAM HYDROBROMIDE
  9. FOLIC ACID. [Concomitant]
     Active Substance: FOLIC ACID
  10. OMEPRAZOLE. [Concomitant]
     Active Substance: OMEPRAZOLE

REACTIONS (5)
  - Syncope [Recovering/Resolving]
  - Fall [Unknown]
  - Unresponsive to stimuli [Unknown]
  - Bradycardia [Recovering/Resolving]
  - Dizziness [Recovering/Resolving]

NARRATIVE: CASE EVENT DATE: 20150928
